FAERS Safety Report 6071730-3 (Version None)
Quarter: 2009Q1

REPORT INFORMATION
  Report Type: 
  Country: None (occurrence: None)
  Receive Date: 20090209
  Receipt Date: 20090209
  Transmission Date: 20090719
  Serious: Yes (Hospitalization)
  Sender: FDA-Public Use
  Company Number: None

PATIENT
  Age: 64 Year
  Sex: Male
  Weight: 87 kg

DRUGS (2)
  1. CLOPIDOGREL [Suspect]
     Indication: CEREBROVASCULAR ACCIDENT
     Dosage: 75M
  2. ASPIRIN [Suspect]

REACTIONS (7)
  - ANAEMIA [None]
  - BLISTER [None]
  - HAEMATOMA [None]
  - INJURY [None]
  - SKIN EXFOLIATION [None]
  - THROMBOSIS [None]
  - WOUND [None]
